FAERS Safety Report 17843578 (Version 3)
Quarter: 2020Q4

REPORT INFORMATION
  Report Type: Spontaneous
  Country: DE (occurrence: DE)
  Receive Date: 20200531
  Receipt Date: 20201125
  Transmission Date: 20210113
  Serious: Yes (Death, Hospitalization, Other)
  Sender: FDA-Public Use
  Company Number: DE-AMGEN-DEUSP2020085072

PATIENT

DRUGS (2)
  1. PROLIA [Suspect]
     Active Substance: DENOSUMAB
     Indication: PRODUCT USED FOR UNKNOWN INDICATION
     Dosage: UNK
     Route: 065
  2. XGEVA [Suspect]
     Active Substance: DENOSUMAB
     Indication: PRODUCT USED FOR UNKNOWN INDICATION
     Dosage: UNK
     Route: 065

REACTIONS (9)
  - Dental implantation [Unknown]
  - Tooth disorder [Unknown]
  - Mouth ulceration [Unknown]
  - Death [Fatal]
  - Endodontic procedure [Unknown]
  - Tooth extraction [Unknown]
  - Periodontitis [Unknown]
  - Odontogenic cyst [Unknown]
  - Osteonecrosis of jaw [Unknown]
